FAERS Safety Report 9031935 (Version 1)
Quarter: 2013Q1

REPORT INFORMATION
  Report Type: Spontaneous
  Country: US (occurrence: US)
  Receive Date: 20130125
  Receipt Date: 20130125
  Transmission Date: 20140127
  Serious: Yes (Other)
  Sender: FDA-Public Use
  Company Number: US-PFIZER INC-2013031266

PATIENT
  Age: 60 Year
  Sex: Female
  Weight: 91.61 kg

DRUGS (3)
  1. LOPID [Suspect]
     Indication: BLOOD CHOLESTEROL INCREASED
     Dosage: 600 MG, ONCE A DAY
     Route: 048
  2. DILANTIN [Suspect]
     Indication: CONVULSION
     Dosage: 100 MG, TWO TIMES A DAY
     Route: 048
  3. DILANTIN [Suspect]
     Dosage: 200 MG (TWO 100MG CAPSULES), TWO TIMES A DAY
     Route: 048

REACTIONS (3)
  - Bladder disorder [Unknown]
  - Neuropathy peripheral [Unknown]
  - Gastrointestinal disorder [Unknown]
